FAERS Safety Report 11813228 (Version 1)
Quarter: 2015Q4

REPORT INFORMATION
  Report Type: Spontaneous
  Country: US (occurrence: None)
  Receive Date: 20151208
  Receipt Date: 20151208
  Transmission Date: 20160305
  Serious: Yes (Hospitalization)
  Sender: FDA-Public Use
  Company Number: None

PATIENT
  Age: 68 Year
  Sex: Male
  Weight: 83.6 kg

DRUGS (10)
  1. ATORVASTATIN [Concomitant]
     Active Substance: ATORVASTATIN
  2. LASIX [Concomitant]
     Active Substance: FUROSEMIDE
  3. NORCO [Concomitant]
     Active Substance: ACETAMINOPHEN\HYDROCODONE BITARTRATE
  4. ALDACTONE [Concomitant]
     Active Substance: SPIRONOLACTONE
  5. AUGMENTIN [Concomitant]
     Active Substance: AMOXICILLIN\CLAVULANATE POTASSIUM
  6. LANTUS [Suspect]
     Active Substance: INSULIN GLARGINE
     Indication: DIABETES MELLITUS
     Dosage: 45UNITS
     Route: 058
  7. HUMALOG [Suspect]
     Active Substance: INSULIN LISPRO
     Indication: DIABETES MELLITUS
     Dosage: 15UNITS AC BRKFST ; 10UNITS AC LUNC/DIN?
     Route: 058
  8. COREG [Concomitant]
     Active Substance: CARVEDILOL
  9. LISINOPRIL. [Concomitant]
     Active Substance: LISINOPRIL
  10. ASA [Concomitant]
     Active Substance: ASPIRIN

REACTIONS (6)
  - Toe amputation [None]
  - Confusional state [None]
  - Presyncope [None]
  - Hypoglycaemia [None]
  - Respiratory distress [None]
  - Localised infection [None]
